FAERS Safety Report 9091767 (Version 1)
Quarter: 2013Q1

REPORT INFORMATION
  Report Type: Report from Study
  Country: US (occurrence: US)
  Receive Date: 20130131
  Receipt Date: 20130131
  Transmission Date: 20140127
  Serious: No
  Sender: FDA-Public Use
  Company Number: US-ABBOTT-12P-163-0992788-00

PATIENT
  Age: 42 Year
  Sex: Female

DRUGS (6)
  1. HUMIRA [Suspect]
     Indication: PSORIATIC ARTHROPATHY
     Dates: start: 20121003
  2. LEVOTHYROXINE [Concomitant]
     Indication: HYPOTHYROIDISM
     Dosage: 0.75 MCG DAILY
  3. METHOTREXATE [Concomitant]
     Indication: PSORIATIC ARTHROPATHY
     Dosage: 2.5 MG TABS, 8 WEEKLY
  4. MULTIVITAMIN [Concomitant]
     Indication: SUPPLEMENTATION THERAPY
     Dosage: DAILY
  5. FOLIC ACID [Concomitant]
     Indication: ILL-DEFINED DISORDER
     Dosage: ONE DAILY
  6. VITAMIN D3 [Concomitant]
     Indication: VITAMIN D DECREASED
     Dosage: 5,000 UNITS DAILY

REACTIONS (9)
  - Fatigue [Not Recovered/Not Resolved]
  - Feeling abnormal [Not Recovered/Not Resolved]
  - Mood altered [Not Recovered/Not Resolved]
  - Crying [Not Recovered/Not Resolved]
  - Irritability [Not Recovered/Not Resolved]
  - Movement disorder [Recovered/Resolved]
  - Aphasia [Recovered/Resolved]
  - Hypoaesthesia [Unknown]
  - Sleep disorder [Unknown]
